FAERS Safety Report 18408228 (Version 3)
Quarter: 2020Q4

REPORT INFORMATION
  Report Type: Spontaneous
  Country: DE (occurrence: DE)
  Receive Date: 20201020
  Receipt Date: 20201216
  Transmission Date: 20210114
  Serious: Yes (Hospitalization)
  Sender: FDA-Public Use
  Company Number: DE-PURDUE-USA-2020-0167216

PATIENT
  Sex: Female

DRUGS (11)
  1. PALLADON [Interacting]
     Active Substance: HYDROMORPHONE
     Indication: BACK PAIN
     Dosage: UNK
     Route: 065
     Dates: start: 202010, end: 202011
  2. PALLADON [Interacting]
     Active Substance: HYDROMORPHONE
     Dosage: UNK UNK, BID
     Route: 065
  3. PALLADONE [Interacting]
     Active Substance: HYDROMORPHONE HYDROCHLORIDE
     Dosage: 8 MG, TID
     Route: 065
  4. PALLADON [Interacting]
     Active Substance: HYDROMORPHONE
     Dosage: 16 MG, BID [STRENGTH 4 MG]
     Route: 065
  5. PALLADONE [Suspect]
     Active Substance: HYDROMORPHONE HYDROCHLORIDE
     Indication: BACK PAIN
     Dosage: 16 MG, BID [STRENGTH 4 MG]
     Route: 065
  6. NORTASE [Concomitant]
     Indication: PRODUCT USED FOR UNKNOWN INDICATION
     Dosage: UNK
     Route: 065
  7. PALLADON [Interacting]
     Active Substance: HYDROMORPHONE
     Dosage: 2 MG, UNK
     Route: 065
  8. GABAPENTIN. [Interacting]
     Active Substance: GABAPENTIN
     Indication: PRODUCT USED FOR UNKNOWN INDICATION
     Dosage: UNK
     Route: 065
  9. NORTASE [Concomitant]
     Dosage: UNK
     Route: 065
  10. PALLADONE [Interacting]
     Active Substance: HYDROMORPHONE HYDROCHLORIDE
     Dosage: 2 MG, UNK
     Route: 065
  11. PALLADON [Interacting]
     Active Substance: HYDROMORPHONE
     Dosage: 8 MG, TID
     Route: 065

REACTIONS (7)
  - Hospitalisation [Not Recovered/Not Resolved]
  - Diarrhoea [Not Recovered/Not Resolved]
  - Labelled drug-drug interaction issue [Unknown]
  - Pancreatic enzyme abnormality [Not Recovered/Not Resolved]
  - Feeling cold [Unknown]
  - Drug withdrawal syndrome [Unknown]
  - Product dose omission issue [Unknown]
